FAERS Safety Report 10282519 (Version 2)
Quarter: 2014Q4

REPORT INFORMATION
  Report Type: Spontaneous
  Country: US (occurrence: US)
  Receive Date: 20140707
  Receipt Date: 20141006
  Transmission Date: 20150528
  Serious: Yes (Death, Other)
  Sender: FDA-Public Use
  Company Number: US-GILEAD-2014-0107514

PATIENT
  Age: 79 Year
  Sex: Female

DRUGS (12)
  1. LETAIRIS [Suspect]
     Active Substance: AMBRISENTAN
     Indication: PULMONARY ARTERIAL HYPERTENSION
     Dosage: 10 MG, QD
     Route: 065
     Dates: start: 20080903, end: 20140601
  2. LANTUS [Concomitant]
     Active Substance: INSULIN GLARGINE
  3. SPIRONOLACTONE. [Concomitant]
     Active Substance: SPIRONOLACTONE
  4. LEVOXYL [Concomitant]
     Active Substance: LEVOTHYROXINE SODIUM
  5. MONOPRIL [Concomitant]
     Active Substance: FOSINOPRIL SODIUM
  6. PRILOSEC [Concomitant]
     Active Substance: OMEPRAZOLE MAGNESIUM
  7. MEGESTROL [Concomitant]
     Active Substance: MEGESTROL
  8. ULORIC [Concomitant]
     Active Substance: FEBUXOSTAT
  9. VENLAFAXINE [Concomitant]
     Active Substance: VENLAFAXINE HYDROCHLORIDE
  10. ANASTROZOLE. [Concomitant]
     Active Substance: ANASTROZOLE
  11. COREG [Concomitant]
     Active Substance: CARVEDILOL
  12. FUROSEMIDE. [Concomitant]
     Active Substance: FUROSEMIDE

REACTIONS (4)
  - Cardiac failure [Fatal]
  - Pulmonary hypertension [Fatal]
  - Breast cancer [Fatal]
  - Ischaemic cardiomyopathy [Fatal]
